FAERS Safety Report 6369905-9 (Version None)
Quarter: 2009Q3

REPORT INFORMATION
  Report Type: 
  Country: None (occurrence: None)
  Receive Date: 20090923
  Receipt Date: 20070409
  Transmission Date: 20100115
  Serious: Yes (Hospitalization, Other)
  Sender: FDA-Public Use
  Company Number: US-ASTRAZENECA-2006UW11034

PATIENT
  Age: 29 Year
  Sex: Male
  Weight: 137 kg

DRUGS (21)
  1. SEROQUEL [Suspect]
     Indication: BIPOLAR DISORDER
     Route: 048
     Dates: start: 20010101, end: 20060101
  2. SEROQUEL [Suspect]
     Indication: BIPOLAR I DISORDER
     Route: 048
     Dates: start: 20010101, end: 20060101
  3. SEROQUEL [Suspect]
     Indication: SCHIZOPHRENIA
     Route: 048
     Dates: start: 20010101, end: 20060101
  4. SEROQUEL [Suspect]
     Dosage: 25 MG - 400 MG
     Route: 048
     Dates: start: 20021107
  5. SEROQUEL [Suspect]
     Dosage: 25 MG - 400 MG
     Route: 048
     Dates: start: 20021107
  6. SEROQUEL [Suspect]
     Dosage: 25 MG - 400 MG
     Route: 048
     Dates: start: 20021107
  7. ZYPREXA [Suspect]
     Dosage: 5MG-25MG
     Route: 048
     Dates: start: 20021001
  8. ABILIFY [Concomitant]
     Dates: start: 20030101
  9. RISPERDAL [Concomitant]
     Indication: BIPOLAR DISORDER
     Dosage: 4MG-25MG
     Dates: start: 20050101
  10. RISPERDAL [Concomitant]
     Indication: SCHIZOPHRENIA
     Dosage: 4MG-25MG
     Dates: start: 20050101
  11. RISPERDAL [Concomitant]
     Dosage: EVERY TWO WEEKS
  12. RISPERDAL [Concomitant]
     Dosage: EVERY TWO WEEKS
  13. LEXAPRO [Concomitant]
     Dosage: 10MG-20MG
     Route: 048
     Dates: start: 20020910, end: 20030101
  14. LITHIUM [Concomitant]
     Indication: BIPOLAR DISORDER
  15. LITHIUM [Concomitant]
     Indication: SCHIZOPHRENIA
  16. LITHIUM CARBONATE [Concomitant]
     Route: 048
  17. ATENOLOL [Concomitant]
     Indication: HYPERTENSION
     Route: 048
  18. GABITRIL [Concomitant]
     Indication: ANXIETY
     Route: 048
  19. ZOCOR [Concomitant]
     Route: 048
  20. ACTOS [Concomitant]
     Route: 048
  21. LISINOPRIL [Concomitant]

REACTIONS (4)
  - DIABETIC KETOACIDOSIS [None]
  - HYPERGLYCAEMIA [None]
  - INSULIN-REQUIRING TYPE 2 DIABETES MELLITUS [None]
  - TYPE 2 DIABETES MELLITUS [None]
